FAERS Safety Report 7586574-0 (Version None)
Quarter: 2011Q3

REPORT INFORMATION
  Report Type: 
  Country: None (occurrence: None)
  Receive Date: 20110701
  Receipt Date: 20110620
  Transmission Date: 20111222
  Serious: Yes (Hospitalization, Other)
  Sender: FDA-Public Use
  Company Number: US-AMGEN-USASP2011031690

PATIENT
  Age: 54 Year
  Sex: Female

DRUGS (1)
  1. ENBREL [Suspect]
     Indication: PSORIASIS
     Dosage: 50 MG, QWK
     Dates: start: 20110125, end: 20110525

REACTIONS (11)
  - OVARIAN INFECTION [None]
  - ABDOMINAL PAIN [None]
  - PYREXIA [None]
  - MENORRHAGIA [None]
  - TINEA PEDIS [None]
  - PSORIASIS [None]
  - DIARRHOEA [None]
  - MALAISE [None]
  - UTERINE POLYP [None]
  - HYPOTENSION [None]
  - SALPINGITIS [None]
